FAERS Safety Report 13162600 (Version 1)
Quarter: 2017Q1

REPORT INFORMATION
  Report Type: Spontaneous
  Country: US (occurrence: US)
  Receive Date: 20170125
  Receipt Date: 20170125
  Transmission Date: 20170428
  Serious: No
  Sender: FDA-Public Use
  Company Number: None

PATIENT
  Age: 68 Year
  Sex: Male
  Weight: 130.5 kg

DRUGS (8)
  1. TAMULOSIN [Concomitant]
     Active Substance: TAMSULOSIN
  2. PRIMAL DEFENSE ULTRA PROBIOTIC [Concomitant]
  3. CPAP MACHINE [Concomitant]
  4. VITAMIN D3 [Concomitant]
     Active Substance: CHOLECALCIFEROL
  5. PANOPRAZOLE [Concomitant]
  6. LISINOPRIL. [Concomitant]
     Active Substance: LISINOPRIL
  7. ALLEGRA [Concomitant]
     Active Substance: FEXOFENADINE HYDROCHLORIDE
  8. LISINOPRIL 10MG TABLETS [Suspect]
     Active Substance: LISINOPRIL
     Indication: BLOOD PRESSURE MEASUREMENT
     Dosage: ?          QUANTITY:1 TABLET(S);?
     Route: 048
     Dates: start: 20170124, end: 20170125

REACTIONS (2)
  - Blood pressure increased [None]
  - Drug effect decreased [None]

NARRATIVE: CASE EVENT DATE: 20170124
